FAERS Safety Report 11336199 (Version 1)
Quarter: 2015Q3

REPORT INFORMATION
  Report Type: Spontaneous
  Country: US (occurrence: US)
  Receive Date: 20150804
  Receipt Date: 20150804
  Transmission Date: 20151125
  Serious: Yes (Other)
  Sender: FDA-Public Use
  Company Number: US-PFIZER INC-2015255517

PATIENT
  Age: 6 Decade
  Sex: Male

DRUGS (14)
  1. PRISTIQ EXTENDED RELEASE [Suspect]
     Active Substance: DESVENLAFAXINE SUCCINATE
     Indication: DEPRESSION
  2. GEODON [Concomitant]
     Active Substance: ZIPRASIDONE HYDROCHLORIDE\ZIPRASIDONE MESYLATE
     Indication: SCHIZOPHRENIA
     Dosage: 80 MG, 2X/DAY
  3. MELATONIN [Concomitant]
     Active Substance: MELATONIN
     Indication: SLEEP DISORDER
     Dosage: 10MG AT NIGHT
  4. PRISTIQ EXTENDED RELEASE [Suspect]
     Active Substance: DESVENLAFAXINE SUCCINATE
     Indication: ANXIETY
     Dosage: UNK
     Dates: end: 2009
  5. SERTRALINE HYDROCHLORIDE. [Concomitant]
     Active Substance: SERTRALINE HYDROCHLORIDE
     Indication: ANXIETY
     Dosage: 100 MG, 1X/DAY
  6. SERTRALINE HYDROCHLORIDE. [Concomitant]
     Active Substance: SERTRALINE HYDROCHLORIDE
     Indication: DEPRESSION
  7. AMBIEN [Concomitant]
     Active Substance: ZOLPIDEM TARTRATE
     Indication: INSOMNIA
     Dosage: 12.5MG AT BEDTIME
  8. VALIUM [Concomitant]
     Active Substance: DIAZEPAM
     Indication: ANXIETY
     Dosage: 5 MG, 4X/DAY
  9. TRAZODONE [Concomitant]
     Active Substance: TRAZODONE HYDROCHLORIDE
     Indication: SLEEP DISORDER
  10. VALIUM [Concomitant]
     Active Substance: DIAZEPAM
     Indication: DEPRESSION
  11. TRAZODONE [Concomitant]
     Active Substance: TRAZODONE HYDROCHLORIDE
     Indication: ANXIETY
     Dosage: 50MG TWO PILLS AT BEDTIME
  12. TRAZODONE [Concomitant]
     Active Substance: TRAZODONE HYDROCHLORIDE
     Indication: DEPRESSION
  13. FLOMAX [Concomitant]
     Active Substance: TAMSULOSIN HYDROCHLORIDE
     Indication: DYSURIA
     Dosage: 0.4MG 1 OF THEM AT BEDTIME
  14. LOMOTIL [Concomitant]
     Active Substance: ATROPINE SULFATE\DIPHENOXYLATE HYDROCHLORIDE

REACTIONS (4)
  - Suicidal ideation [Recovered/Resolved]
  - Malaise [Recovered/Resolved]
  - Coeliac disease [Not Recovered/Not Resolved]
  - Drug withdrawal syndrome [Recovered/Resolved]

NARRATIVE: CASE EVENT DATE: 2009
